FAERS Safety Report 23124202 (Version 1)
Quarter: 2023Q4

REPORT INFORMATION
  Report Type: Spontaneous
  Country: US (occurrence: None)
  Receive Date: 20231027
  Receipt Date: 20231027
  Transmission Date: 20240110
  Serious: Yes (Life-Threatening, Other)
  Sender: FDA-Public Use
  Company Number: None

PATIENT
  Age: 63 Year
  Sex: Female
  Weight: 90.9 kg

DRUGS (12)
  1. QULIPTA [Suspect]
     Active Substance: ATOGEPANT
     Indication: Migraine
     Dosage: OTHER QUANTITY : 1 TABLET(S);?
     Route: 048
     Dates: start: 20230926, end: 20231003
  2. AMBIEN [Concomitant]
     Active Substance: ZOLPIDEM TARTRATE
  3. TIZANIDINE [Suspect]
     Active Substance: TIZANIDINE
  4. PANTOPRAZOLE [Concomitant]
     Active Substance: PANTOPRAZOLE
  5. TOPIRAMATE [Concomitant]
     Active Substance: TOPIRAMATE
  6. IBUPROFEN [Concomitant]
     Active Substance: IBUPROFEN
  7. MODAFINIL [Concomitant]
     Active Substance: MODAFINIL
  8. Cetrizine Hydrochloride [Concomitant]
  9. MAGNESIUM [Concomitant]
     Active Substance: MAGNESIUM
  10. POTASSIUM ASPARTATE [Concomitant]
     Active Substance: POTASSIUM ASPARTATE
  11. BENADRYL [Concomitant]
     Active Substance: DIPHENHYDRAMINE HYDROCHLORIDE
  12. MINERALS\VITAMINS [Concomitant]
     Active Substance: MINERALS\VITAMINS

REACTIONS (8)
  - Migraine [None]
  - Anxiety [None]
  - Middle insomnia [None]
  - Drug ineffective [None]
  - Emotional disorder [None]
  - Suicidal ideation [None]
  - Crying [None]
  - Drug interaction [None]

NARRATIVE: CASE EVENT DATE: 20230927
